FAERS Safety Report 8243417-X (Version None)
Quarter: 2012Q1

REPORT INFORMATION
  Report Type: 
  Country: None (occurrence: None)
  Receive Date: 20120329
  Receipt Date: 20120319
  Transmission Date: 20120608
  Serious: Yes (Death)
  Sender: FDA-Public Use
  Company Number: DE-UCBSA-048882

PATIENT
  Age: 17 Year
  Sex: Female
  Weight: 60 kg

DRUGS (6)
  1. CLONAZEPAM [Suspect]
     Indication: EPILEPSY
     Route: 048
     Dates: start: 20111214, end: 20120101
  2. LEVETIRACETAM [Suspect]
     Indication: EPILEPSY
     Dosage: 500 MG IN THE EVENING BEFORE BEDTIME
     Route: 048
     Dates: start: 20111214, end: 20120101
  3. LEVETIRACETAM [Suspect]
     Dosage: UP-TITRATION
  4. VIMPAT [Suspect]
     Indication: EPILEPSY
     Dosage: 100MG IN MORNING
     Route: 048
     Dates: start: 20111214, end: 20120101
  5. LEVETIRACETAM [Suspect]
     Dates: start: 20110801
  6. VIMPAT [Suspect]
     Dosage: 50MG
     Dates: start: 20111130, end: 20110101

REACTIONS (2)
  - DEATH [None]
  - AGGRESSION [None]
